FAERS Safety Report 14432463 (Version 4)
Quarter: 2018Q2

REPORT INFORMATION
  Report Type: Spontaneous
  Country: JP (occurrence: JP)
  Receive Date: 20180124
  Receipt Date: 20180604
  Transmission Date: 20180711
  Serious: Yes (Other)
  Sender: FDA-Public Use
  Company Number: JP-BAYER-2018-008270

PATIENT
  Age: 58 Year
  Sex: Male

DRUGS (2)
  1. NEXAVAR [Suspect]
     Active Substance: SORAFENIB
     Indication: MIXED HEPATOCELLULAR CHOLANGIOCARCINOMA
     Dosage: DAILY DOSE 800 MG
     Route: 048
     Dates: start: 201408
  2. NEXAVAR [Suspect]
     Active Substance: SORAFENIB
     Indication: MIXED HEPATOCELLULAR CHOLANGIOCARCINOMA
     Dosage: DAILY DOSE 400 MG
     Route: 048
     Dates: end: 201701

REACTIONS (4)
  - Diarrhoea [None]
  - Platelet count decreased [None]
  - Ascites [None]
  - Gastrointestinal haemorrhage [None]

NARRATIVE: CASE EVENT DATE: 201502
